FAERS Safety Report 10853902 (Version 2)
Quarter: 2015Q1

REPORT INFORMATION
  Report Type: Spontaneous
  Country: CA (occurrence: CA)
  Receive Date: 20150223
  Receipt Date: 20150224
  Transmission Date: 20150721
  Serious: Yes (Other)
  Sender: FDA-Public Use
  Company Number: CA-TARO PHARMACEUTICALS U.S.A., INC-2015SUN00515

PATIENT

DRUGS (3)
  1. VITAMINS [Concomitant]
     Active Substance: VITAMINS
  2. TARO-MOMETASONE CREAM 0.1% [Suspect]
     Active Substance: MOMETASONE
     Indication: ECZEMA
     Dosage: 0.1 %, QD
     Route: 061
  3. TARO-MOMETASONE TOPICAL SOLUTION 0.1% [Suspect]
     Active Substance: MOMETASONE
     Indication: ECZEMA
     Dosage: 0.1 %, QD, PRN
     Route: 061

REACTIONS (4)
  - Hirsutism [Not Recovered/Not Resolved]
  - Amenorrhoea [Not Recovered/Not Resolved]
  - Abdominal pain [Not Recovered/Not Resolved]
  - Mood altered [Not Recovered/Not Resolved]
